FAERS Safety Report 4407602-7 (Version None)
Quarter: 2004Q3

REPORT INFORMATION
  Report Type: 
  Country: None (occurrence: None)
  Receive Date: 20040721
  Receipt Date: 20040707
  Transmission Date: 20050211
  Serious: Yes (Death, Hospitalization)
  Sender: FDA-Public Use
  Company Number: 2004-0007076

PATIENT
  Age: 30 Year
  Sex: Female
  Weight: 44 kg

DRUGS (8)
  1. VIREAD [Suspect]
     Indication: HIV INFECTION
     Dosage: 300 MG, 1 IN 1 D, ORAL
     Route: 048
     Dates: start: 20030904
  2. AMBISOME [Suspect]
     Indication: LEISHMANIASIS
     Dates: start: 20031001, end: 20031201
  3. BACTRIM [Suspect]
     Dosage: 960, 3 IN 1 WK, ORAL
     Route: 048
     Dates: start: 20030901, end: 20031201
  4. KALETRA [Concomitant]
  5. EPIVIR [Concomitant]
  6. MYAMBUTOL [Concomitant]
  7. AVELOX [Concomitant]
  8. MYCOBUTIN [Concomitant]

REACTIONS (15)
  - ANAEMIA [None]
  - CYTOMEGALOVIRUS TEST POSITIVE [None]
  - HEPATITIS CHOLESTATIC [None]
  - HERPES VIRUS INFECTION [None]
  - HYPOKALAEMIA [None]
  - HYPONATRAEMIA [None]
  - INFLAMMATION [None]
  - LEISHMANIASIS [None]
  - METABOLIC ACIDOSIS [None]
  - MICROSPORIDIA INFECTION [None]
  - MULTI-ORGAN FAILURE [None]
  - PLATELET COUNT DECREASED [None]
  - RENAL TUBULAR ACIDOSIS [None]
  - RENAL TUBULAR DISORDER [None]
  - WHITE BLOOD CELL COUNT DECREASED [None]
